FAERS Safety Report 15928480 (Version 1)
Quarter: 2019Q1

REPORT INFORMATION
  Report Type: Spontaneous
  Country: KZ (occurrence: KZ)
  Receive Date: 20190206
  Receipt Date: 20190206
  Transmission Date: 20190417
  Serious: Yes (Other)
  Sender: FDA-Public Use
  Company Number: PHHY2019KZ024162

PATIENT
  Age: 34 Year
  Sex: Male
  Weight: 50 kg

DRUGS (8)
  1. LINEZOLID. [Suspect]
     Active Substance: LINEZOLID
     Indication: TUBERCULOSIS
     Dosage: 600 MG, QD
     Route: 065
     Dates: start: 20180919, end: 20181229
  2. BEDAQUILINE [Suspect]
     Active Substance: BEDAQUILINE
     Indication: TUBERCULOSIS
     Dosage: 400 MG, QD
     Route: 065
     Dates: start: 20180919, end: 20181225
  3. CLOFAZIMINE [Suspect]
     Active Substance: CLOFAZIMINE
     Indication: TUBERCULOSIS
     Dosage: 200 MG, QD
     Route: 065
     Dates: start: 20180919, end: 20181130
  4. BEDAQUILINE [Suspect]
     Active Substance: BEDAQUILINE
     Dosage: UNK
     Route: 065
     Dates: start: 20190110, end: 201901
  5. IMIPENEM AND CILASTATIN [Suspect]
     Active Substance: CILASTATIN SODIUM\IMIPENEM
     Indication: TUBERCULOSIS
     Dosage: 2000 MG, QD
     Route: 065
     Dates: start: 20180919, end: 20181114
  6. AMOXICILLIN AND CLAVULANATE POTASSIUM [Suspect]
     Active Substance: AMOXICILLIN\CLAVULANATE POTASSIUM
     Indication: TUBERCULOSIS
     Dosage: 2000 MG, QD
     Route: 065
     Dates: start: 20180919, end: 20181114
  7. DELAMANID [Suspect]
     Active Substance: DELAMANID
     Indication: TUBERCULOSIS
     Dosage: 200 MG, QD
     Route: 065
     Dates: start: 20180919, end: 20181225
  8. LINEZOLID. [Suspect]
     Active Substance: LINEZOLID
     Dosage: UNK
     Route: 065
     Dates: start: 20190110, end: 201901

REACTIONS (11)
  - Electrocardiogram QT prolonged [Unknown]
  - Pleurisy [Unknown]
  - Haemoglobin decreased [Unknown]
  - Hypotension [Unknown]
  - Drug intolerance [Unknown]
  - Asthenia [Unknown]
  - Product availability issue [Unknown]
  - Dyspnoea [Unknown]
  - Blood potassium decreased [Recovered/Resolved]
  - Nausea [Unknown]
  - Vomiting [Unknown]

NARRATIVE: CASE EVENT DATE: 20180919
